FAERS Safety Report 18181323 (Version 1)
Quarter: 2020Q3

REPORT INFORMATION
  Report Type: Spontaneous
  Country: US (occurrence: US)
  Receive Date: 20200821
  Receipt Date: 20200821
  Transmission Date: 20201103
  Serious: No
  Sender: FDA-Public Use
  Company Number: US-ASTRAZENECA-2020SF03382

PATIENT
  Age: 68 Year
  Sex: Male
  Weight: 68 kg

DRUGS (11)
  1. LEVOTHYROXINE. [Concomitant]
     Active Substance: LEVOTHYROXINE
  2. OMEPRAZOLE. [Suspect]
     Active Substance: OMEPRAZOLE
     Route: 048
  3. IRON [Concomitant]
     Active Substance: IRON
  4. OXYGEN CENCETRATOR [Concomitant]
  5. ALBUTEROL. [Concomitant]
     Active Substance: ALBUTEROL
  6. SYMBICORT [Suspect]
     Active Substance: BUDESONIDE\FORMOTEROL FUMARATE DIHYDRATE
     Indication: CHRONIC OBSTRUCTIVE PULMONARY DISEASE
     Dosage: UNKNOWN DOSE AND FREQUENCY UNKNOWN
     Route: 055
  7. SPIRIVA [Concomitant]
     Active Substance: TIOTROPIUM BROMIDE MONOHYDRATE
  8. CHLORTHALDIONE [Concomitant]
     Indication: HYPERTENSION
  9. LOSARTON [Concomitant]
     Indication: HYPERTENSION
  10. MAGNESIUM [Concomitant]
     Active Substance: MAGNESIUM
  11. ALLERGY [Concomitant]
     Active Substance: UNSPECIFIED INGREDIENT

REACTIONS (4)
  - Muscle tightness [Unknown]
  - Arthralgia [Recovered/Resolved]
  - Pain [Unknown]
  - Pain in extremity [Unknown]
